FAERS Safety Report 9232081 (Version 2)
Quarter: 2013Q2

REPORT INFORMATION
  Report Type: Spontaneous
  Country: US (occurrence: US)
  Receive Date: 20130415
  Receipt Date: 20130603
  Transmission Date: 20140414
  Serious: No
  Sender: FDA-Public Use
  Company Number: US-PFIZER INC-2013115674

PATIENT
  Age: 73 Year
  Sex: Female
  Weight: 56.6 kg

DRUGS (2)
  1. ADVIL COLD AND SINUS [Suspect]
     Indication: NASOPHARYNGITIS
     Dosage: UNK
     Route: 048
     Dates: start: 20130409
  2. ADVIL COLD AND SINUS [Suspect]
     Indication: SINUSITIS

REACTIONS (4)
  - Drug ineffective [Unknown]
  - Condition aggravated [Unknown]
  - Dysgeusia [Unknown]
  - Dyspnoea [Unknown]
